FAERS Safety Report 14000013 (Version 1)
Quarter: 2017Q3

REPORT INFORMATION
  Report Type: Spontaneous
  Country: US (occurrence: None)
  Receive Date: 20170922
  Receipt Date: 20170922
  Transmission Date: 20171128
  Serious: Yes (Hospitalization)
  Sender: FDA-Public Use
  Company Number: None

PATIENT
  Age: 46 Year
  Sex: Male
  Weight: 95.98 kg

DRUGS (2)
  1. SUCCINYLCHOLINE [Suspect]
     Active Substance: SUCCINYLCHOLINE
     Indication: SURGERY
     Route: 042
     Dates: start: 20170725, end: 20170726
  2. SUCCINYLCHOLINE [Suspect]
     Active Substance: SUCCINYLCHOLINE
     Indication: ANAESTHESIA
     Route: 042
     Dates: start: 20170725, end: 20170726

REACTIONS (6)
  - Hypotension [None]
  - Hyperkalaemia [None]
  - Acute kidney injury [None]
  - Bradycardia [None]
  - Electrocardiogram ST segment depression [None]
  - Ventricular tachycardia [None]

NARRATIVE: CASE EVENT DATE: 20170726
